FAERS Safety Report 18057583 (Version 1)
Quarter: 2020Q3

REPORT INFORMATION
  Report Type: Report from Study
  Country: None (occurrence: AT)
  Receive Date: 20200723
  Receipt Date: 20200723
  Transmission Date: 20201103
  Serious: Yes (Hospitalization, Other)
  Sender: FDA-Public Use
  Company Number: AT-ABBVIE-20K-009-3488862-00

PATIENT
  Age: 62 Year
  Sex: Male

DRUGS (1)
  1. DUODOPA [Suspect]
     Active Substance: CARBIDOPA\LEVODOPA
     Indication: PARKINSON^S DISEASE
     Dosage: MD: 19ML, CR DAYTIME: 5.8ML/H, ED: 3ML
     Route: 050
     Dates: start: 20170321

REACTIONS (1)
  - Endotracheal intubation [Recovered/Resolved]

NARRATIVE: CASE EVENT DATE: 202007
